FAERS Safety Report 20776219 (Version 1)
Quarter: 2022Q2

REPORT INFORMATION
  Report Type: Spontaneous
  Country: US (occurrence: US)
  Receive Date: 20220502
  Receipt Date: 20220502
  Transmission Date: 20220720
  Serious: Yes (Hospitalization)
  Sender: FDA-Public Use
  Company Number: US-NOVARTISPH-NVSC2022US094932

PATIENT
  Sex: Female

DRUGS (1)
  1. DOTATATE GALLIUM GA-68 [Suspect]
     Active Substance: DOTATATE GALLIUM GA-68
     Indication: Product used for unknown indication
     Dosage: UNK
     Route: 065

REACTIONS (5)
  - Abdominal pain upper [Unknown]
  - Vomiting [Unknown]
  - Dyspepsia [Unknown]
  - Gastrointestinal motility disorder [Unknown]
  - Nausea [Unknown]
